FAERS Safety Report 9030652 (Version 2)
Quarter: 2014Q1

REPORT INFORMATION
  Report Type: Spontaneous
  Country: AU (occurrence: AU)
  Receive Date: 20130123
  Receipt Date: 20140327
  Transmission Date: 20141002
  Serious: Yes (Hospitalization, Other)
  Sender: FDA-Public Use
  Company Number: AU-ASTRAZENECA-2013SE03926

PATIENT
  Age: 27055 Day
  Sex: Female
  Weight: 64 kg

DRUGS (7)
  1. NEXIUM [Suspect]
     Indication: GASTROOESOPHAGEAL REFLUX DISEASE
     Route: 048
     Dates: start: 20110811
  2. MOTILIUM [Suspect]
     Indication: GASTROOESOPHAGEAL REFLUX DISEASE
     Route: 048
     Dates: start: 20120301, end: 20120704
  3. NIZORAL [Suspect]
     Indication: GENITAL CANDIDIASIS
     Route: 048
     Dates: start: 20120626, end: 20120704
  4. XALATAN [Concomitant]
     Indication: GLAUCOMA
     Route: 047
     Dates: start: 2000
  5. PREDNEFRIN [Concomitant]
     Indication: KERATITIS
     Dosage: 1/1 DROP/D; 2 DAYS/WEEK
     Route: 047
     Dates: start: 2000
  6. CANESTEN [Concomitant]
     Indication: VULVOVAGINAL CANDIDIASIS
     Dosage: 1/1 AT NIGHT X 6
     Route: 067
     Dates: start: 2006
  7. SYMBICORT [Concomitant]
     Indication: ASTHMA
     Dosage: 1/1 DF, PRN
     Route: 055
     Dates: start: 2011

REACTIONS (5)
  - Arrhythmia [Recovered/Resolved]
  - Extrasystoles [Recovering/Resolving]
  - Heart rate irregular [Not Recovered/Not Resolved]
  - Loss of consciousness [Recovering/Resolving]
  - Feeling abnormal [Not Recovered/Not Resolved]
